FAERS Safety Report 7669976-3 (Version None)
Quarter: 2011Q3

REPORT INFORMATION
  Report Type: 
  Country: None (occurrence: None)
  Receive Date: 20110808
  Receipt Date: 20110802
  Transmission Date: 20111222
  Serious: Yes (Death, Other)
  Sender: FDA-Public Use
  Company Number: PHHY2011IT69660

PATIENT
  Age: 39 Year
  Sex: Male

DRUGS (2)
  1. PROPRANOLOL [Suspect]
     Indication: THYROTOXIC CRISIS
     Dosage: 2 MG
     Route: 042
  2. PROPRANOLOL [Suspect]
     Dosage: 5 MG INFUSED AT A RATE OF 0.16 MG/MIN OVER 30 MINUTES

REACTIONS (9)
  - EJECTION FRACTION DECREASED [None]
  - ANURIA [None]
  - CARDIOGENIC SHOCK [None]
  - DYSPNOEA [None]
  - ATRIAL FIBRILLATION [None]
  - MULTI-ORGAN FAILURE [None]
  - CARDIO-RESPIRATORY ARREST [None]
  - COMA [None]
  - SUPRAVENTRICULAR TACHYCARDIA [None]
